FAERS Safety Report 8102349-8 (Version None)
Quarter: 2012Q1

REPORT INFORMATION
  Report Type: 
  Country: None (occurrence: None)
  Receive Date: 20120201
  Receipt Date: 20120126
  Transmission Date: 20120608
  Serious: No
  Sender: FDA-Public Use
  Company Number: US-PFIZER INC-2012023413

PATIENT
  Sex: Female
  Weight: 71.2 kg

DRUGS (3)
  1. ACETYLSALICYLIC ACID [Concomitant]
     Indication: CARDIAC PACEMAKER INSERTION
     Dosage: 81 MG, DAILY
  2. LIPITOR [Suspect]
     Indication: BLOOD CHOLESTEROL INCREASED
     Dosage: 10 MG, DAILY
     Dates: start: 20090101
  3. LIPITOR [Suspect]
     Indication: CARDIAC PACEMAKER INSERTION

REACTIONS (1)
  - PAIN IN EXTREMITY [None]
